FAERS Safety Report 12584308 (Version 1)
Quarter: 2016Q3

REPORT INFORMATION
  Report Type: Spontaneous
  Country: US (occurrence: US)
  Receive Date: 20160722
  Receipt Date: 20160722
  Transmission Date: 20161109
  Serious: Yes (Other)
  Sender: FDA-Public Use
  Company Number: US-PFIZER INC-2016352400

PATIENT
  Age: 42 Year
  Sex: Female

DRUGS (1)
  1. EPINEPHRINE. [Suspect]
     Active Substance: EPINEPHRINE
     Dosage: INJECTION OF 0.5 ML OF 1:1000 EPINEPHRINE

REACTIONS (1)
  - Atrial tachycardia [Recovered/Resolved]
